FAERS Safety Report 8509670-X (Version None)
Quarter: 2012Q3

REPORT INFORMATION
  Report Type: 
  Country: None (occurrence: None)
  Receive Date: 20120713
  Receipt Date: 20120706
  Transmission Date: 20120928
  Serious: Yes (Other)
  Sender: FDA-Public Use
  Company Number: US-ASTRAZENECA-2012SE25054

PATIENT
  Age: 60 Year
  Sex: Female

DRUGS (3)
  1. NEXIUM [Suspect]
     Route: 048
  2. GENERIC MEDICATIONS [Suspect]
     Route: 065
  3. CELEBREX [Concomitant]

REACTIONS (12)
  - RETINAL DEPIGMENTATION [None]
  - INTRAOCULAR LENS IMPLANT [None]
  - MALIGNANT MYOPIA [None]
  - VISUAL ACUITY REDUCED [None]
  - DIZZINESS [None]
  - STRESS [None]
  - VITREOUS FLOATERS [None]
  - ACCIDENT [None]
  - BACK PAIN [None]
  - EPILEPSY [None]
  - DEPRESSION [None]
  - DRUG INEFFECTIVE [None]
